FAERS Safety Report 14653337 (Version 1)
Quarter: 2018Q1

REPORT INFORMATION
  Report Type: Report from Study
  Country: DE (occurrence: DE)
  Receive Date: 20180319
  Receipt Date: 20180319
  Transmission Date: 20180509
  Serious: Yes (Other)
  Sender: FDA-Public Use
  Company Number: DE-ROCHE-2088883

PATIENT

DRUGS (28)
  1. BEVACIZUMAB. [Suspect]
     Active Substance: BEVACIZUMAB
     Indication: NEOPLASM MALIGNANT
     Route: 042
  2. VISCUM ALBUM [Suspect]
     Active Substance: VISCUM ALBUM FRUITING TOP
     Indication: NEOPLASM MALIGNANT
     Route: 042
  3. CARBOPLATIN. [Concomitant]
     Active Substance: CARBOPLATIN
  4. PARACETAMOL [Concomitant]
     Active Substance: ACETAMINOPHEN
  5. PREDNISOLONE. [Concomitant]
     Active Substance: PREDNISOLONE
  6. OFATUMUMAB [Suspect]
     Active Substance: OFATUMUMAB
     Indication: NEOPLASM MALIGNANT
     Route: 042
  7. TRASTUZUMAB EMTANSINE [Suspect]
     Active Substance: ADO-TRASTUZUMAB EMTANSINE
     Indication: NEOPLASM MALIGNANT
     Route: 042
  8. CLEMASTINE [Concomitant]
     Active Substance: CLEMASTINE
  9. DIMETHINDENE MALEATE [Concomitant]
     Active Substance: DIMETHINDENE MALEATE
  10. CETUXIMAB. [Suspect]
     Active Substance: CETUXIMAB
     Indication: NEOPLASM MALIGNANT
     Route: 042
  11. CAPECITABINE. [Concomitant]
     Active Substance: CAPECITABINE
     Route: 065
  12. DOCETAXEL. [Concomitant]
     Active Substance: DOCETAXEL
  13. VINORELBINE [Concomitant]
     Active Substance: VINORELBINE\VINORELBINE TARTRATE
  14. RITUXIMAB. [Suspect]
     Active Substance: RITUXIMAB
     Indication: NEOPLASM MALIGNANT
     Route: 042
  15. CISPLATIN. [Concomitant]
     Active Substance: CISPLATIN
  16. FLUDARABINE [Concomitant]
     Active Substance: FLUDARABINE PHOSPHATE
  17. OXALIPLATIN. [Concomitant]
     Active Substance: OXALIPLATIN
  18. PACLITAXEL. [Concomitant]
     Active Substance: PACLITAXEL
  19. ATROPINE. [Concomitant]
     Active Substance: ATROPINE
  20. TRASTUZUMAB. [Suspect]
     Active Substance: TRASTUZUMAB
     Indication: NEOPLASM MALIGNANT
     Route: 042
  21. CYCLOPHOSPHAMIDE. [Concomitant]
     Active Substance: CYCLOPHOSPHAMIDE
  22. PANITUMUMAB [Suspect]
     Active Substance: PANITUMUMAB
     Indication: NEOPLASM MALIGNANT
     Route: 042
  23. FLUOROURACIL. [Concomitant]
     Active Substance: FLUOROURACIL
  24. FOLINIC ACID [Concomitant]
     Active Substance: LEUCOVORIN
  25. IRINOTECAN [Concomitant]
     Active Substance: IRINOTECAN
  26. PEMETREXED. [Concomitant]
     Active Substance: PEMETREXED
  27. DEXAMETHASONE. [Concomitant]
     Active Substance: DEXAMETHASONE
  28. GEMCITABINE [Concomitant]
     Active Substance: GEMCITABINE\GEMCITABINE HYDROCHLORIDE

REACTIONS (51)
  - Gingivitis [Unknown]
  - Oral herpes [Unknown]
  - Urticaria [Unknown]
  - Vomiting [Unknown]
  - Urosepsis [Unknown]
  - Fatigue [Unknown]
  - Pyrexia [Unknown]
  - Back pain [Unknown]
  - Rosacea [Unknown]
  - Skin reaction [Unknown]
  - Malaise [Unknown]
  - Dizziness [Unknown]
  - Enuresis [Unknown]
  - Pain [Unknown]
  - Urinary tract infection [Unknown]
  - Asthenia [Unknown]
  - Cognitive disorder [Unknown]
  - Somnolence [Unknown]
  - Mucosal inflammation [Unknown]
  - Dry skin [Unknown]
  - Polyneuropathy [Unknown]
  - Haemorrhage [Unknown]
  - Colitis [Unknown]
  - Chills [Unknown]
  - Decreased appetite [Unknown]
  - Hypersensitivity [Unknown]
  - Pyelonephritis [Unknown]
  - Granulocytopenia [Unknown]
  - Anaemia [Unknown]
  - Swelling [Unknown]
  - Bladder disorder [Unknown]
  - Dyspnoea [Unknown]
  - Palmar-plantar erythrodysaesthesia syndrome [Unknown]
  - Neutropenia [Unknown]
  - Leukopenia [Unknown]
  - Hyperhidrosis [Unknown]
  - Eye infection [Unknown]
  - Fungal infection [Unknown]
  - Skin infection [Unknown]
  - Stoma site infection [Unknown]
  - Rhinorrhoea [Unknown]
  - Dermatitis acneiform [Unknown]
  - Eczema [Unknown]
  - Generalised erythema [Unknown]
  - Pruritus [Unknown]
  - Nausea [Unknown]
  - Abscess [Unknown]
  - Septic encephalopathy [Unknown]
  - Thrombocytopenia [Unknown]
  - Diarrhoea [Unknown]
  - Stomatitis [Unknown]
